FAERS Safety Report 15759344 (Version 2)
Quarter: 2019Q1

REPORT INFORMATION
  Report Type: Spontaneous
  Country: US (occurrence: US)
  Receive Date: 20181226
  Receipt Date: 20190118
  Transmission Date: 20190417
  Serious: No
  Sender: FDA-Public Use
  Company Number: US-AMGEN INC.-USASP2018183142

PATIENT
  Sex: Female

DRUGS (1)
  1. AIMOVIG [Suspect]
     Active Substance: ERENUMAB-AOOE
     Indication: PRODUCT USED FOR UNKNOWN INDICATION
     Dosage: UNK
     Route: 065
     Dates: start: 2018

REACTIONS (7)
  - Heart rate increased [Unknown]
  - Feeling abnormal [Unknown]
  - Migraine [Unknown]
  - Dizziness [Unknown]
  - Insomnia [Unknown]
  - Crying [Unknown]
  - Confusional state [Unknown]

NARRATIVE: CASE EVENT DATE: 2018
